FAERS Safety Report 5026803-0 (Version None)
Quarter: 2006Q2

REPORT INFORMATION
  Report Type: 
  Country: None (occurrence: None)
  Receive Date: 20060501
  Receipt Date: 20060203
  Transmission Date: 20061013
  Serious: No
  Sender: FDA-Public Use
  Company Number: 200610719BWH

PATIENT
  Age: 65 Year
  Sex: Male
  Weight: 135.6255 kg

DRUGS (3)
  1. NEXAVAR [Suspect]
     Indication: RENAL CELL CARCINOMA STAGE UNSPECIFIED
     Dosage: 400 MG, BID, ORAL
     Route: 048
     Dates: start: 20060201
  2. DILANTIN [Concomitant]
  3. STOOL SOFTNER [Concomitant]

REACTIONS (5)
  - BLOOD PRESSURE INCREASED [None]
  - DRY SKIN [None]
  - FATIGUE [None]
  - HEADACHE [None]
  - PAIN IN EXTREMITY [None]
